FAERS Safety Report 10252274 (Version 2)
Quarter: 2014Q2

REPORT INFORMATION
  Report Type: Spontaneous
  Country: IT (occurrence: None)
  Receive Date: 20140619
  Receipt Date: 20140630
  Transmission Date: 20141212
  Serious: Yes (Hospitalization)
  Sender: FDA-Public Use
  Company Number: AUR-APL-2014-06463

PATIENT
  Sex: Female

DRUGS (1)
  1. CARVEDILOL (CARVEDILOL) UNKNOWN [Suspect]
     Indication: PRODUCT USED FOR UNKNOWN INDICATION
     Dosage: UNKNOWN

REACTIONS (4)
  - Presyncope [None]
  - Vomiting [None]
  - Drug interaction [None]
  - Hypotension [None]
